FAERS Safety Report 7983275-1 (Version None)
Quarter: 2011Q4

REPORT INFORMATION
  Report Type: 
  Country: None (occurrence: None)
  Receive Date: 20111215
  Receipt Date: 20111212
  Transmission Date: 20120403
  Serious: Yes (Hospitalization)
  Sender: FDA-Public Use
  Company Number: KR-ROXANE LABORATORIES, INC.-2011-RO-01792RO

PATIENT
  Age: 80 Year
  Sex: Female

DRUGS (4)
  1. CALCIUM CARBONATE [Suspect]
     Indication: HYPOPARATHYROIDISM
     Dosage: 3 G
  2. VITAMIN D [Suspect]
     Indication: HYPOPARATHYROIDISM
     Dosage: 1.5 MCG
  3. BISPHOSPHONATE [Suspect]
     Indication: OSTEOPOROSIS
  4. LEVOTHYROXINE SODIUM [Suspect]
     Indication: HYPOTHYROIDISM

REACTIONS (4)
  - RENAL FAILURE ACUTE [None]
  - METABOLIC ALKALOSIS [None]
  - MILK-ALKALI SYNDROME [None]
  - MUSCULAR WEAKNESS [None]
